FAERS Safety Report 10630504 (Version 1)
Quarter: 2014Q4

REPORT INFORMATION
  Report Type: Spontaneous
  Country: US (occurrence: US)
  Receive Date: 20141205
  Receipt Date: 20141205
  Transmission Date: 20150529
  Serious: No
  Sender: FDA-Public Use
  Company Number: US-BRISTOL-MYERS SQUIBB COMPANY-21057039

PATIENT
  Age: 64 Year
  Sex: Female
  Weight: 65.76 kg

DRUGS (1)
  1. SYMLIN [Suspect]
     Active Substance: PRAMLINTIDE ACETATE
     Indication: TYPE 1 DIABETES MELLITUS
     Dosage: 15MCG FOR ABOUT A WEEK, 30MCG FOR 2 WEEKS, 45MCG FOR TWO WEEKS, A FEW DAYS TO A WEEK ON 60MCG,.

REACTIONS (2)
  - Nausea [Unknown]
  - Constipation [Not Recovered/Not Resolved]
